FAERS Safety Report 13827860 (Version 2)
Quarter: 2017Q3

REPORT INFORMATION
  Report Type: Spontaneous
  Country: IE (occurrence: IE)
  Receive Date: 20170803
  Receipt Date: 20170914
  Transmission Date: 20171127
  Serious: Yes (Other)
  Sender: FDA-Public Use
  Company Number: IE-HORIZON-VIM-0097-2017

PATIENT
  Age: 47 Year
  Sex: Female
  Weight: 88 kg

DRUGS (3)
  1. ACETAMINOPHEN. [Concomitant]
     Active Substance: ACETAMINOPHEN
     Indication: BACK PAIN
     Dosage: 4 GM (1 GM, 4 IN 1 D)
  2. AMITRIPTYLINE [Concomitant]
     Active Substance: AMITRIPTYLINE
     Indication: BACK PAIN
     Dosage: 20 MG
     Dates: start: 20170611, end: 20170707
  3. VIMOVO [Suspect]
     Active Substance: ESOMEPRAZOLE MAGNESIUM\NAPROXEN
     Indication: BACK PAIN
     Dosage: 1 DF TWICE DAILY
     Route: 048
     Dates: start: 20170619, end: 20170707

REACTIONS (6)
  - Rash [Recovered/Resolved]
  - Wound secretion [Recovered/Resolved]
  - Skin fissures [Recovered/Resolved]
  - Erythema [Recovered/Resolved]
  - Photosensitivity reaction [Recovered/Resolved]
  - Blister [Recovered/Resolved]

NARRATIVE: CASE EVENT DATE: 20170625
